FAERS Safety Report 11305059 (Version 1)
Quarter: 2015Q3

REPORT INFORMATION
  Report Type: Spontaneous
  Country: US (occurrence: US)
  Receive Date: 20150723
  Receipt Date: 20150723
  Transmission Date: 20151125
  Serious: No
  Sender: FDA-Public Use
  Company Number: US-JNJFOC-20140812260

PATIENT
  Age: 7 Month
  Sex: Female
  Weight: 8.16 kg

DRUGS (1)
  1. ZYRTEC [Suspect]
     Active Substance: CETIRIZINE HYDROCHLORIDE
     Indication: MULTIPLE ALLERGIES
     Dosage: MOTHER^S DOSING: 10MG 1/2 TABLET TABLETS FOR THE LAST 2 DAYS
     Route: 063
     Dates: start: 20140809, end: 20140810

REACTIONS (2)
  - Rash [Recovered/Resolved]
  - Exposure during breast feeding [Recovered/Resolved]

NARRATIVE: CASE EVENT DATE: 20140809
